FAERS Safety Report 5151664-9 (Version None)
Quarter: 2006Q4

REPORT INFORMATION
  Report Type: 
  Country: None (occurrence: None)
  Receive Date: 20061109
  Receipt Date: 20061101
  Transmission Date: 20070319
  Serious: Yes (Other)
  Sender: FDA-Public Use
  Company Number: 230545

PATIENT
  Age: 69 Year
  Sex: Male

DRUGS (6)
  1. XOLAIR [Suspect]
     Indication: ASTHMA
     Dosage: 300 MG, QOW
     Dates: start: 20060801
  2. AMBIEN [Suspect]
     Indication: DRUG USE FOR UNKNOWN INDICATION
     Dosage: 10 MG, QHS, ORAL
     Route: 048
  3. SINGULAIR [Concomitant]
  4. COMBIVENT INHALER (ALBUTEROL, ALBUTEROL SULFATE, IPRATROPIUM BROMIDE) [Concomitant]
  5. MACROBID [Concomitant]
  6. ADVAIR DISKUS 100/50 [Concomitant]

REACTIONS (2)
  - DRUG INTERACTION [None]
  - HALLUCINATION [None]
